FAERS Safety Report 9752735 (Version 1)
Quarter: 2013Q4

REPORT INFORMATION
  Report Type: Spontaneous
  Country: US (occurrence: US)
  Receive Date: 20131213
  Receipt Date: 20131213
  Transmission Date: 20140711
  Serious: No
  Sender: FDA-Public Use
  Company Number: US-009507513-1312USA006061

PATIENT
  Sex: Male

DRUGS (6)
  1. DULERA [Suspect]
     Dosage: 2 PUFFS, BID
     Route: 055
     Dates: start: 20110926
  2. XANAX [Concomitant]
  3. XOLAIR [Concomitant]
  4. CIALIS [Concomitant]
  5. QVAR [Concomitant]
  6. NORVASC [Concomitant]

REACTIONS (3)
  - Drug effect decreased [Unknown]
  - Device malfunction [Unknown]
  - Underdose [Unknown]
